FAERS Safety Report 18136298 (Version 1)
Quarter: 2020Q3

REPORT INFORMATION
  Report Type: Spontaneous
  Country: HR (occurrence: HR)
  Receive Date: 20200811
  Receipt Date: 20200811
  Transmission Date: 20201103
  Serious: Yes (Other)
  Sender: FDA-Public Use
  Company Number: HR-MYLANLABS-2020M1069682

PATIENT
  Age: 87 Year
  Sex: Female

DRUGS (2)
  1. FEVARIN [Suspect]
     Active Substance: FLUVOXAMINE MALEATE
     Indication: PRODUCT USED FOR UNKNOWN INDICATION
     Dosage: KAZU DA JE (POPILA) 30 TBL FEVARINA OD 100
     Route: 048
     Dates: start: 20200607, end: 20200607
  2. TRAMAL [Suspect]
     Active Substance: TRAMADOL
     Indication: PRODUCT USED FOR UNKNOWN INDICATION
     Dosage: 30 X 200 MG TRAMALA
     Route: 048
     Dates: start: 20200607, end: 20200607

REACTIONS (6)
  - Somnolence [Unknown]
  - Vomiting [Unknown]
  - Intentional overdose [Unknown]
  - Suicide attempt [Unknown]
  - Atrioventricular block [Unknown]
  - Miosis [Unknown]

NARRATIVE: CASE EVENT DATE: 20200607
